FAERS Safety Report 23116542 (Version 1)
Quarter: 2023Q4

REPORT INFORMATION
  Report Type: Spontaneous
  Country: JO (occurrence: None)
  Receive Date: 20231027
  Receipt Date: 20231027
  Transmission Date: 20240110
  Serious: Yes (Death, Life-Threatening, Other)
  Sender: FDA-Public Use
  Company Number: 2023A242307

PATIENT
  Age: 47 Year
  Sex: Female

DRUGS (5)
  1. TAMOXIFEN [Suspect]
     Active Substance: TAMOXIFEN
     Indication: Invasive ductal breast carcinoma
     Route: 048
     Dates: end: 2020
  2. FULVESTRANT [Suspect]
     Active Substance: FULVESTRANT
     Indication: Invasive ductal breast carcinoma
     Route: 030
  3. PACLITAXEL [Suspect]
     Active Substance: PACLITAXEL
  4. LETROZOLE [Suspect]
     Active Substance: LETROZOLE
  5. BISOPROLOL [Concomitant]
     Active Substance: BISOPROLOL\BISOPROLOL FUMARATE

REACTIONS (8)
  - Septic shock [Fatal]
  - Malignant neoplasm progression [Unknown]
  - Lower respiratory tract infection [Unknown]
  - Malignant pleural effusion [Unknown]
  - Metastases to spine [Unknown]
  - Metastases to thorax [Unknown]
  - Metastases to liver [Unknown]
  - Metastases to lung [Unknown]
